FAERS Safety Report 10574167 (Version 1)
Quarter: 2014Q4

REPORT INFORMATION
  Report Type: Spontaneous
  Country: DE (occurrence: BE)
  Receive Date: 20141110
  Receipt Date: 20141110
  Transmission Date: 20150529
  Serious: Yes (Other)
  Sender: FDA-Public Use
  Company Number: BE-MERZ NORTH AMERICA, INC.-14MRZ-00396

PATIENT
  Sex: Female
  Weight: 70 kg

DRUGS (2)
  1. AETHOXYSKLEROL [Suspect]
     Active Substance: POLIDOCANOL
     Indication: VARICOSE VEIN
     Route: 042
  2. REDOMEX [Concomitant]
     Indication: MIGRAINE

REACTIONS (4)
  - Anaphylactic reaction [None]
  - Bronchospasm [None]
  - Injection site pain [None]
  - Urticaria [None]
